FAERS Safety Report 10840885 (Version 1)
Quarter: 2015Q1

REPORT INFORMATION
  Report Type: Spontaneous
  Country: US (occurrence: US)
  Receive Date: 20150220
  Receipt Date: 20150220
  Transmission Date: 20150721
  Serious: No
  Sender: FDA-Public Use
  Company Number: US-ABBVIE-14P-163-1250843-00

PATIENT
  Age: 15 Year
  Sex: Female

DRUGS (7)
  1. MINOCYCLINE [Concomitant]
     Active Substance: MINOCYCLINE\MINOCYCLINE HYDROCHLORIDE
     Indication: ACNE
  2. HUMIRA [Suspect]
     Active Substance: ADALIMUMAB
     Indication: RHEUMATOID ARTHRITIS
     Dates: start: 201010, end: 20140508
  3. ALYACEN [Concomitant]
     Indication: POLYCYSTIC OVARIES
  4. LEVOTHYROXINE [Concomitant]
     Active Substance: LEVOTHYROXINE
     Indication: HYPOTHYROIDISM
  5. HUMIRA [Suspect]
     Active Substance: ADALIMUMAB
     Indication: UVEITIS
  6. PREDNISONE. [Concomitant]
     Active Substance: PREDNISONE
     Indication: POLYCYSTIC OVARIES
  7. METFORMIN [Concomitant]
     Active Substance: METFORMIN HYDROCHLORIDE
     Indication: POLYCYSTIC OVARIES

REACTIONS (16)
  - Drug dose omission [Unknown]
  - Uveitis [Not Recovered/Not Resolved]
  - Back pain [Recovered/Resolved]
  - Device issue [Unknown]
  - Incorrect dose administered [Unknown]
  - Injection site inflammation [Unknown]
  - Injection site pain [Not Recovered/Not Resolved]
  - Injection site pain [Unknown]
  - Menstruation irregular [Unknown]
  - Nephrolithiasis [Not Recovered/Not Resolved]
  - Abdominal pain [Recovered/Resolved]
  - Injection site pain [Unknown]
  - Device issue [Unknown]
  - Incorrect dose administered [Unknown]
  - Injection site inflammation [Unknown]
  - Pain in extremity [Not Recovered/Not Resolved]

NARRATIVE: CASE EVENT DATE: 201010
